FAERS Safety Report 4297285-1 (Version None)
Quarter: 2004Q1

REPORT INFORMATION
  Report Type: 
  Country: None (occurrence: None)
  Receive Date: 20040213
  Receipt Date: 20040206
  Transmission Date: 20041129
  Serious: Yes (Hospitalization)
  Sender: FDA-Public Use
  Company Number: 2002107679DE

PATIENT
  Age: 66 Year
  Sex: Female

DRUGS (4)
  1. CAMPTOSAR [Suspect]
     Indication: GASTRIC CANCER
     Dosage: 135 MG UNK IV
     Route: 042
     Dates: start: 20020207
  2. IMOFOLIN 6/15/30 (CALCIUM FOLINATE) SOLUTION, STERILE [Suspect]
     Indication: GASTRIC CANCER
     Dosage: 500 MG/M2
  3. FLUOROURACIL [Suspect]
     Indication: GASTRIC CANCER
     Dosage: 2000 MG/M2 IV
     Route: 042
  4. INSULIN [Suspect]
     Indication: DIABETES MELLITUS
     Dosage: SUBCUTANEOUS
     Route: 058

REACTIONS (3)
  - HYPOGLYCAEMIC COMA [None]
  - NIGHT SWEATS [None]
  - WEIGHT DECREASED [None]
